FAERS Safety Report 9390922 (Version 1)
Quarter: 2013Q3

REPORT INFORMATION
  Report Type: Spontaneous
  Country: US (occurrence: US)
  Receive Date: 20130709
  Receipt Date: 20130709
  Transmission Date: 20140515
  Serious: No
  Sender: FDA-Public Use
  Company Number: US-PFIZER INC-2013200464

PATIENT
  Sex: Male

DRUGS (5)
  1. SUTENT [Suspect]
     Indication: NEOPLASM MALIGNANT
     Dosage: UNK
     Dates: end: 201306
  2. VICODIN [Concomitant]
     Indication: PAIN
     Dosage: 10/325 1-2 TABS EVERY 4 HOURS AS NEEDED
  3. ASPIRIN (E.C.) [Concomitant]
     Dosage: 325 MG, 4X/DAY
     Route: 048
  4. MORPHINE SULFATE [Concomitant]
     Dosage: 15 MG, AS NEEDED
  5. ENSURE [Concomitant]
     Dosage: 1-3 DAILY

REACTIONS (2)
  - Disease progression [Unknown]
  - Neoplasm malignant [Unknown]
